FAERS Safety Report 21823199 (Version 1)
Quarter: 2023Q1

REPORT INFORMATION
  Report Type: Spontaneous
  Country: US (occurrence: US)
  Receive Date: 20230105
  Receipt Date: 20230105
  Transmission Date: 20230418
  Serious: No
  Sender: FDA-Public Use
  Company Number: US-LANNETT COMPANY, INC.-US-2022LAN000152

PATIENT
  Sex: Female

DRUGS (1)
  1. TRIAMTERENE AND HYDROCHLOROTHIAZIDE [Suspect]
     Active Substance: HYDROCHLOROTHIAZIDE\TRIAMTERENE
     Indication: Swelling
     Dosage: UNK
     Route: 048

REACTIONS (15)
  - Dyspnoea [Not Recovered/Not Resolved]
  - Wheezing [Unknown]
  - Dysphagia [Unknown]
  - Anosmia [Unknown]
  - Ageusia [Unknown]
  - Cough [Not Recovered/Not Resolved]
  - Weight increased [Unknown]
  - Pain [Unknown]
  - Nervousness [Unknown]
  - Blood glucose increased [Unknown]
  - Illness [Unknown]
  - Nasal congestion [Not Recovered/Not Resolved]
  - Blood sodium decreased [Unknown]
  - Myalgia [Unknown]
  - Blood calcium decreased [Unknown]

NARRATIVE: CASE EVENT DATE: 20050101
